FAERS Safety Report 9639010 (Version 1)
Quarter: 2013Q4

REPORT INFORMATION
  Report Type: Spontaneous
  Country: GB (occurrence: GB)
  Receive Date: 20131022
  Receipt Date: 20131022
  Transmission Date: 20140711
  Serious: Yes (Life-Threatening, Hospitalization)
  Sender: FDA-Public Use
  Company Number: GB-TEVA-437974ISR

PATIENT
  Age: 81 Year
  Sex: Female
  Weight: 57.85 kg

DRUGS (4)
  1. NITROFURANTOIN [Suspect]
     Indication: URINARY TRACT INFECTION
     Dosage: 7 DAY COURSE
     Dates: start: 20120625
  2. OMEPRAZOLE [Concomitant]
     Indication: BARRETT^S OESOPHAGUS
     Dosage: LONG TERM
  3. GAVISCON [Concomitant]
     Indication: PERFORATED ULCER
     Dosage: LONG TERM
  4. PARACETAMOL [Concomitant]
     Indication: ARTHRITIS
     Dosage: LONG TERM

REACTIONS (12)
  - Rash [Recovered/Resolved with Sequelae]
  - Chest discomfort [Recovered/Resolved]
  - Dyspnoea [Recovered/Resolved]
  - Vision blurred [Recovered/Resolved with Sequelae]
  - Musculoskeletal stiffness [Recovered/Resolved]
  - Sensation of heaviness [Recovered/Resolved]
  - Skin disorder [Recovered/Resolved with Sequelae]
  - Eye disorder [Recovered/Resolved with Sequelae]
  - Hypertension [Recovered/Resolved]
  - Paraesthesia [Recovered/Resolved]
  - Peripheral coldness [Recovered/Resolved]
  - Fatigue [Recovered/Resolved]
